FAERS Safety Report 9244836 (Version 1)
Quarter: 2013Q2

REPORT INFORMATION
  Report Type: Spontaneous
  Country: KZ (occurrence: KZ)
  Receive Date: 20130422
  Receipt Date: 20130422
  Transmission Date: 20140414
  Serious: Yes (Hospitalization, Other)
  Sender: FDA-Public Use
  Company Number: PHHY2013KZ036933

PATIENT
  Age: 58 Year
  Sex: Male
  Weight: 130 kg

DRUGS (6)
  1. ACLASTA [Suspect]
     Indication: OSTEOPOROSIS
     Dosage: 5 MG, UNK
     Route: 042
     Dates: start: 2011
  2. SIOFOR [Concomitant]
     Indication: TYPE 2 DIABETES MELLITUS
     Dosage: UNK UKN, UNK
  3. ACE INHIBITOR NOS [Concomitant]
     Dosage: UNK UKN, UNK
  4. CALCIUM CHANNEL BLOCKERS [Concomitant]
     Dosage: UNK UKN, UNK
  5. BETA BLOCKING AGENTS [Concomitant]
     Dosage: UNK UKN, UNK
  6. DIURETICS [Concomitant]
     Dosage: UNK UKN, UNK

REACTIONS (9)
  - Cold sweat [Recovering/Resolving]
  - Agitation [Recovering/Resolving]
  - Arthralgia [Recovering/Resolving]
  - Hypertension [Recovering/Resolving]
  - Asthenia [Recovering/Resolving]
  - Body temperature increased [Recovering/Resolving]
  - Type 2 diabetes mellitus [Unknown]
  - Obesity [Unknown]
  - Pneumonia [Unknown]
